FAERS Safety Report 19830306 (Version 3)
Quarter: 2021Q3

REPORT INFORMATION
  Report Type: Report from Study
  Country: CN (occurrence: CN)
  Receive Date: 20210915
  Receipt Date: 20210922
  Transmission Date: 20211014
  Serious: Yes (Hospitalization)
  Sender: FDA-Public Use
  Company Number: CN-ROCHE-2899101

PATIENT
  Age: 63 Year
  Sex: Female
  Weight: 58 kg

DRUGS (12)
  1. FOLIC ACID. [Concomitant]
     Active Substance: FOLIC ACID
     Dates: start: 20201116
  2. GLYCERINE ENEMA [Concomitant]
     Dates: start: 202009
  3. PEMETREXED. [Suspect]
     Active Substance: PEMETREXED
     Indication: NON-SMALL CELL LUNG CANCER
     Dosage: ON 19/MAR/2021, THE MOST RECENT DOSE OF PEMETREXED (760 MG) WAS RECEIVED PRIOR TO SERIOUS ADVERSE EV
     Route: 042
     Dates: start: 20201125
  4. SODIUM IBANDRONATE [Concomitant]
     Active Substance: IBANDRONATE SODIUM
     Indication: METASTASES TO BONE
     Dates: start: 20210818, end: 20210818
  5. MORPHINE SULFATE. [Concomitant]
     Active Substance: MORPHINE SULFATE
     Indication: PAIN
     Dates: start: 20200914
  6. BLINDED ATEZOLIZUMAB [Suspect]
     Active Substance: ATEZOLIZUMAB
     Indication: NON-SMALL CELL LUNG CANCER
     Dosage: ON 18/AUG/2021, THE MOST RECENT DOSE OF BLINDED ATEZOLIZUMAB WAS RECEIVED PRIOR TO SAE.
     Route: 041
     Dates: start: 20201125
  7. MOXIFLOXACIN HYDROCHLORIDE. [Concomitant]
     Active Substance: MOXIFLOXACIN HYDROCHLORIDE
     Indication: URINARY TRACT INFECTION
     Dates: start: 20210105
  8. IBANDRONATE [Concomitant]
     Active Substance: IBANDRONATE SODIUM
     Indication: METASTASES TO BONE
     Dates: start: 20210728, end: 20210728
  9. BEVACIZUMAB. [Suspect]
     Active Substance: BEVACIZUMAB
     Indication: NON-SMALL CELL LUNG CANCER
     Dosage: ON 28/JUL/2021, THE MOST RECENT DOSE OF BEVACIZUMAB (810 MG) WAS RECEIVED PRIOR TO SERIOUS ADVERSE E
     Route: 042
     Dates: start: 20201125
  10. CARBOPLATIN. [Suspect]
     Active Substance: CARBOPLATIN
     Indication: NON-SMALL CELL LUNG CANCER
     Dosage: ON 29/JAN/2021, THE MOST RECENT DOSE OF CARBOPLATIN (450 MG) WAS RECEIVED PRIOR TO SERIOUS ADVERSE E
     Route: 042
     Dates: start: 20201125
  11. FUFANG BANLANGENG CHONGJI [Concomitant]
     Dates: start: 20210531
  12. OXYCODONE AND ACETAMINOPHEN [Concomitant]
     Active Substance: ACETAMINOPHEN\OXYCODONE HYDROCHLORIDE
     Indication: PAIN
     Dates: start: 20200914

REACTIONS (1)
  - Nephritis [Recovering/Resolving]

NARRATIVE: CASE EVENT DATE: 20210825
